FAERS Safety Report 7604650-0 (Version None)
Quarter: 2011Q3

REPORT INFORMATION
  Report Type: 
  Country: None (occurrence: None)
  Receive Date: 20110712
  Receipt Date: 20110705
  Transmission Date: 20111222
  Serious: Yes (Hospitalization)
  Sender: FDA-Public Use
  Company Number: US-ELI_LILLY_AND_COMPANY-US201107001304

PATIENT
  Sex: Male

DRUGS (4)
  1. GEMCITABINE HYDROCHLORIDE [Suspect]
     Indication: ADENOCARCINOMA PANCREAS
     Dosage: 100 MG/M2, QW
     Route: 042
     Dates: start: 20110215
  2. OTHER PHARMA COMPANY INV DRUG [Suspect]
     Dosage: 313 MG, QW
     Route: 042
     Dates: end: 20110603
  3. OTHER PHARMA COMPANY INV DRUG [Suspect]
     Indication: NON-SMALL CELL LUNG CANCER
     Dosage: 418 MG, QW
     Route: 042
     Dates: start: 20110215
  4. GEMCITABINE HYDROCHLORIDE [Suspect]
     Dosage: 100 MG/M2, DOSED DOWN TO EVERY 3OUT OF 4 WEEKS
     Route: 042
     Dates: end: 20110603

REACTIONS (2)
  - HYPOXIA [None]
  - RESPIRATORY DISORDER [None]
